FAERS Safety Report 9456203 (Version 1)
Quarter: 2013Q3

REPORT INFORMATION
  Report Type: Spontaneous
  Country: US (occurrence: US)
  Receive Date: 20130813
  Receipt Date: 20130813
  Transmission Date: 20140515
  Serious: Yes (Death, Other)
  Sender: FDA-Public Use
  Company Number: US-ENDO PHARMACEUTICALS INC.-OPER20130022

PATIENT
  Age: 20 Year
  Sex: Male

DRUGS (5)
  1. OPANA ER [Suspect]
     Indication: DRUG ABUSE
     Dosage: UNKNOWN
  2. ALPRAZOLAM IR TABLETS [Suspect]
     Indication: DRUG ABUSE
     Dosage: UNKNOWN
     Dates: start: 20080211
  3. OXYCONTIN [Suspect]
     Indication: DRUG ABUSE
     Dosage: UNKNOWN
     Dates: start: 20080211
  4. COCAINE [Suspect]
     Indication: DRUG ABUSE
     Dosage: UNKNOWN
     Route: 065
  5. MARIJUANA [Suspect]
     Indication: DRUG ABUSE
     Dosage: UNKNOWN
     Route: 065

REACTIONS (6)
  - Toxicity to various agents [Fatal]
  - Respiratory failure [Fatal]
  - Overdose [Fatal]
  - Incorrect route of drug administration [Not Recovered/Not Resolved]
  - Drug abuse [Not Recovered/Not Resolved]
  - Drug diversion [Not Recovered/Not Resolved]
